FAERS Safety Report 23970988 (Version 1)
Quarter: 2024Q2

REPORT INFORMATION
  Report Type: Spontaneous
  Country: JP (occurrence: JP)
  Receive Date: 20240613
  Receipt Date: 20240613
  Transmission Date: 20240716
  Serious: Yes (Hospitalization)
  Sender: FDA-Public Use
  Company Number: JP-MYE-2024M1052973AA

PATIENT
  Age: 70 Year
  Sex: Female
  Weight: 38.7 kg

DRUGS (1)
  1. CARVEDILOL [Interacting]
     Active Substance: CARVEDILOL
     Indication: Sinus tachycardia
     Route: 048
     Dates: start: 1997, end: 2013

REACTIONS (4)
  - Coagulopathy [Recovering/Resolving]
  - Herbal interaction [Recovering/Resolving]
  - Drug-induced liver injury [Recovering/Resolving]
  - Off label use [Unknown]

NARRATIVE: CASE EVENT DATE: 20130101
